FAERS Safety Report 5767857-3 (Version None)
Quarter: 2008Q2

REPORT INFORMATION
  Report Type: 
  Country: None (occurrence: None)
  Receive Date: 20080612
  Receipt Date: 20080609
  Transmission Date: 20081010
  Serious: Yes (Hospitalization)
  Sender: FDA-Public Use
  Company Number: US-TEVA-172529USA

PATIENT
  Age: 42 Year
  Sex: Male

DRUGS (6)
  1. PRAZOSIN HCL CAPSULES USP, 5MG [Suspect]
     Indication: NIGHTMARE
     Dosage: EVERY NIGHT
     Route: 048
  2. CITALOPRAM HYDROBROMIDE [Concomitant]
  3. HYDROXYCHLOROQUINE SULFATE [Concomitant]
  4. LISINOPRIL [Concomitant]
  5. INSULIN [Concomitant]
  6. OXYCODONE HCL [Concomitant]

REACTIONS (5)
  - ALTERED STATE OF CONSCIOUSNESS [None]
  - FEAR [None]
  - IMPAIRED DRIVING ABILITY [None]
  - SUICIDAL IDEATION [None]
  - THINKING ABNORMAL [None]
